FAERS Safety Report 24530506 (Version 1)
Quarter: 2024Q4

REPORT INFORMATION
  Report Type: Spontaneous
  Country: GB (occurrence: GB)
  Receive Date: 20241021
  Receipt Date: 20241021
  Transmission Date: 20250115
  Serious: Yes (Life-Threatening)
  Sender: MYLAN
  Company Number: GB-MYLANLABS-2024M1085755

PATIENT
  Sex: Female

DRUGS (1)
  1. CLOZARIL [Suspect]
     Active Substance: CLOZAPINE
     Indication: Schizophrenia
     Dosage: UNK
     Route: 048
     Dates: start: 20191029

REACTIONS (2)
  - Terminal state [Unknown]
  - Anaemia [Unknown]
